FAERS Safety Report 4544453-7 (Version None)
Quarter: 2005Q1

REPORT INFORMATION
  Report Type: 
  Country: None (occurrence: None)
  Receive Date: 20050103
  Receipt Date: 20050103
  Transmission Date: 20050727
  Serious: Yes (Other)
  Sender: FDA-Public Use
  Company Number: None

PATIENT
  Age: 47 Year
  Sex: Female
  Weight: 81.6475 kg

DRUGS (1)
  1. PROZAC [Suspect]
     Indication: ANXIETY
     Dosage: 60     1 PER DAY    ORAL
     Route: 048
     Dates: start: 20030930, end: 20040201

REACTIONS (2)
  - DEPRESSION [None]
  - SUICIDAL IDEATION [None]
